FAERS Safety Report 21504608 (Version 1)
Quarter: 2022Q4

REPORT INFORMATION
  Report Type: Spontaneous
  Country: US (occurrence: US)
  Receive Date: 20221025
  Receipt Date: 20221025
  Transmission Date: 20230112
  Serious: No
  Sender: FDA-Public Use
  Company Number: US-MYLANLABS-2022M1111451

PATIENT
  Sex: Male

DRUGS (2)
  1. DOXYCYCLINE [Suspect]
     Active Substance: DOXYCYCLINE
     Indication: Infection
     Dosage: 100 MILLIGRAM, BID
     Route: 065
  2. CEFIXIME [Concomitant]
     Active Substance: CEFIXIME
     Dosage: UNK
     Route: 065

REACTIONS (6)
  - Vascular pain [Unknown]
  - Vascular injury [Unknown]
  - Infusion site swelling [Unknown]
  - Infusion site pain [Unknown]
  - Infusion site erythema [Recovering/Resolving]
  - Infusion site discolouration [Not Recovered/Not Resolved]
